FAERS Safety Report 4467084-6 (Version None)
Quarter: 2004Q4

REPORT INFORMATION
  Report Type: 
  Country: None (occurrence: None)
  Receive Date: 20041004
  Receipt Date: 20041004
  Transmission Date: 20050328
  Serious: No
  Sender: FDA-Public Use
  Company Number: None

PATIENT
  Age: 86 Year
  Sex: Male
  Weight: 80 kg

DRUGS (3)
  1. FACTOR 7 [Suspect]
     Indication: SUBDURAL HAEMATOMA
     Dosage: 2.4 MG OTO IV
     Route: 042
     Dates: start: 20040915
  2. VITAMIN K [Suspect]
     Indication: SUBDURAL HAEMATOMA
     Dosage: 10 MG Q DAILY SQ
     Route: 058
     Dates: start: 20040916
  3. FRESH FROZEN PLASMA [Concomitant]

REACTIONS (3)
  - FALL [None]
  - PULMONARY EMBOLISM [None]
  - SUBDURAL HAEMATOMA [None]
